FAERS Safety Report 9624223 (Version 2)
Quarter: 2013Q4

REPORT INFORMATION
  Report Type: Spontaneous
  Country: BR (occurrence: BR)
  Receive Date: 20131015
  Receipt Date: 20131029
  Transmission Date: 20140711
  Serious: Yes (Death)
  Sender: FDA-Public Use
  Company Number: BR-BRISTOL-MYERS SQUIBB COMPANY-19510809

PATIENT
  Age: 43 Year
  Sex: Female

DRUGS (5)
  1. YERVOY [Suspect]
     Indication: METASTATIC MALIGNANT MELANOMA
     Dosage: 1DF: 180 UNIQUE ADMINISTRATION ENDOVENOUSLY
     Route: 042
     Dates: start: 20130905
  2. METOCLOPRAMIDE [Concomitant]
     Indication: NAUSEA
  3. METOCLOPRAMIDE [Concomitant]
     Indication: VOMITING
  4. DRAMIN [Concomitant]
     Indication: VOMITING
  5. MORPHINE [Concomitant]
     Indication: PAIN MANAGEMENT

REACTIONS (1)
  - Malignant neoplasm progression [Fatal]
